FAERS Safety Report 4986521-1 (Version None)
Quarter: 2006Q2

REPORT INFORMATION
  Report Type: 
  Country: None (occurrence: None)
  Receive Date: 20060428
  Receipt Date: 20060425
  Transmission Date: 20061013
  Serious: Yes (Hospitalization)
  Sender: FDA-Public Use
  Company Number: ES-ROCHE-445648

PATIENT
  Age: 49 Year
  Sex: Male
  Weight: 78 kg

DRUGS (3)
  1. CELLCEPT [Suspect]
     Indication: DRUG USE FOR UNKNOWN INDICATION
     Route: 048
     Dates: start: 20020715
  2. PROGRAF [Suspect]
     Indication: DRUG USE FOR UNKNOWN INDICATION
     Route: 048
     Dates: start: 20020715, end: 20060322
  3. PROGRAF [Suspect]
     Route: 048
     Dates: start: 20060323

REACTIONS (1)
  - PANCREATITIS [None]
